FAERS Safety Report 7130972-6 (Version None)
Quarter: 2010Q4

REPORT INFORMATION
  Report Type: 
  Country: None (occurrence: None)
  Receive Date: 20101201
  Receipt Date: 20101119
  Transmission Date: 20110411
  Serious: Yes (Congenital Anomaly)
  Sender: FDA-Public Use
  Company Number: A0875973A

PATIENT
  Sex: Male
  Weight: 2.9 kg

DRUGS (1)
  1. PAXIL [Suspect]

REACTIONS (3)
  - BICUSPID AORTIC VALVE [None]
  - CONGENITAL AORTIC STENOSIS [None]
  - DRUG EXPOSURE DURING PREGNANCY [None]
